FAERS Safety Report 8953812 (Version 1)
Quarter: 2012Q4

REPORT INFORMATION
  Report Type: 
  Country: IT (occurrence: IT)
  Receive Date: 20121206
  Receipt Date: 20121206
  Transmission Date: 20130627
  Serious: Yes (Death, Other)
  Sender: FDA-Public Use
  Company Number: IT-BAXTER-2012BAX026181

PATIENT
  Age: 74 Year
  Sex: Female

DRUGS (4)
  1. ENDOXAN BAXTER [Suspect]
     Indication: GIANT CELL ARTERITIS
     Route: 048
  2. PREDNISONE [Suspect]
     Indication: GIANT CELL ARTERITIS
     Route: 065
  3. MESNA [Concomitant]
     Indication: PROPHYLAXIS
     Dosage: 1:1 RATIO WITH CYCLOPHOSPHAMIDE
     Route: 048
  4. ASPIRIN [Concomitant]
     Indication: ANTIPLATELET THERAPY
     Route: 065

REACTIONS (2)
  - Hepatic failure [Fatal]
  - Hepatitis acute [Unknown]
